FAERS Safety Report 12850280 (Version 1)
Quarter: 2016Q4

REPORT INFORMATION
  Report Type: Spontaneous
  Country: AU (occurrence: AU)
  Receive Date: 20161014
  Receipt Date: 20161014
  Transmission Date: 20170207
  Serious: Yes (Death, Hospitalization, Other)
  Sender: FDA-Public Use
  Company Number: PHHY2016AU141649

PATIENT
  Age: 57 Year
  Sex: Male

DRUGS (2)
  1. IMATINIB [Suspect]
     Active Substance: IMATINIB
     Indication: CHRONIC MYELOID LEUKAEMIA
     Dosage: 600 MG, QD
     Route: 065
  2. DASATINIB [Suspect]
     Active Substance: DASATINIB
     Indication: PRODUCT USED FOR UNKNOWN INDICATION
     Dosage: 100 MG, QD
     Route: 065

REACTIONS (11)
  - Bone marrow failure [Unknown]
  - Haemorrhoidal haemorrhage [Unknown]
  - Pyrexia [Unknown]
  - Death [Fatal]
  - Psychiatric symptom [Unknown]
  - Anal fissure [Unknown]
  - Mouth ulceration [Unknown]
  - Back pain [Unknown]
  - Gene mutation identification test positive [Unknown]
  - Depressed mood [Unknown]
  - Enterococcal infection [Unknown]

NARRATIVE: CASE EVENT DATE: 201409
